FAERS Safety Report 8584661-1 (Version None)
Quarter: 2012Q3

REPORT INFORMATION
  Report Type: 
  Country: None (occurrence: None)
  Receive Date: 20120810
  Receipt Date: 20120731
  Transmission Date: 20120928
  Serious: Yes (Hospitalization)
  Sender: FDA-Public Use
  Company Number: US-BAYER-2012-067901

PATIENT
  Sex: Female
  Weight: 92.88 kg

DRUGS (7)
  1. LOESTRIN 1.5/30 [Concomitant]
  2. YASMIN [Suspect]
  3. NORPLANT [Concomitant]
  4. NORCO [Concomitant]
     Indication: PAIN
  5. YAZ [Suspect]
  6. PERCOCET [Concomitant]
     Indication: PAIN
  7. PERCOCET [Concomitant]
     Indication: MUSCLE SPASMS

REACTIONS (7)
  - INJURY [None]
  - PAIN [None]
  - ANXIETY [None]
  - ANHEDONIA [None]
  - QUALITY OF LIFE DECREASED [None]
  - DEEP VEIN THROMBOSIS [None]
  - FEAR [None]
